FAERS Safety Report 21770192 (Version 4)
Quarter: 2025Q4

REPORT INFORMATION
  Report Type: Report from Study
  Country: EU (occurrence: EU)
  Receive Date: 20221223
  Receipt Date: 20251017
  Transmission Date: 20260117
  Serious: Yes (Other)
  Sender: PFIZER
  Company Number: EU-PFM-2022-08996

PATIENT
  Age: 66 Year
  Sex: Male
  Weight: 88 kg

DRUGS (12)
  1. ENCORAFENIB [Suspect]
     Active Substance: ENCORAFENIB
     Indication: Malignant melanoma
     Dosage: 450 MG, QD (1/DAY)
     Route: 048
     Dates: start: 20221021, end: 20221105
  2. ENCORAFENIB [Suspect]
     Active Substance: ENCORAFENIB
     Dosage: 450 MG, QD (1/DAY)
     Route: 048
     Dates: start: 20221107, end: 20230418
  3. BINIMETINIB [Suspect]
     Active Substance: BINIMETINIB
     Indication: Malignant melanoma
     Dosage: 45 MG, BID (2/DAY)
     Route: 048
     Dates: start: 20221021, end: 20221105
  4. BINIMETINIB [Suspect]
     Active Substance: BINIMETINIB
     Dosage: 45 MG, QD (1/DAY)
     Route: 048
     Dates: start: 20221107, end: 20230418
  5. CANDESARTAN CILEXETIL [Concomitant]
     Active Substance: CANDESARTAN CILEXETIL
     Dosage: UNK
     Route: 065
  6. NORVASC [Concomitant]
     Active Substance: AMLODIPINE BESYLATE
     Dosage: UNK
     Route: 065
  7. HYGROTON [Concomitant]
     Active Substance: CHLORTHALIDONE
     Dosage: UNK
     Route: 065
     Dates: start: 202210
  8. NITRENDIPINE [Concomitant]
     Active Substance: NITRENDIPINE
     Dosage: UNK
     Route: 065
  9. MEDYN FORTE [Concomitant]
     Indication: Prophylaxis
     Dosage: UNK
     Route: 065
  10. ATOSIL [Concomitant]
     Dosage: UNK
     Route: 065
  11. ZOPICLONE [Concomitant]
     Active Substance: ZOPICLONE
     Dosage: UNK
     Route: 065
  12. CHOLECALCIFEROL [Concomitant]
     Active Substance: CHOLECALCIFEROL
     Indication: Prophylaxis
     Dosage: UNK
     Route: 065

REACTIONS (1)
  - Insomnia [Unknown]

NARRATIVE: CASE EVENT DATE: 20221021
